FAERS Safety Report 9213436 (Version 1)
Quarter: 2013Q2

REPORT INFORMATION
  Report Type: Spontaneous
  Country: CA (occurrence: CA)
  Receive Date: 20130405
  Receipt Date: 20130405
  Transmission Date: 20140414
  Serious: Yes (Death)
  Sender: FDA-Public Use
  Company Number: PHHY2009CA37045

PATIENT
  Age: 58 Year
  Sex: Female

DRUGS (4)
  1. ACLASTA [Suspect]
     Indication: OSTEOPOROSIS
     Dosage: UNK
     Route: 042
     Dates: start: 20090826
  2. ACLASTA [Suspect]
     Dosage: UNK
     Dates: start: 20100826
  3. ACLASTA [Suspect]
     Dosage: UNK
     Route: 042
     Dates: start: 20110829
  4. ACLASTA [Suspect]
     Dosage: UNK
     Route: 042
     Dates: start: 20121217

REACTIONS (2)
  - Death [Fatal]
  - Infusion site oedema [Unknown]
